FAERS Safety Report 20297649 (Version 1)
Quarter: 2022Q1

REPORT INFORMATION
  Report Type: Spontaneous
  Country: GB (occurrence: GB)
  Receive Date: 20220105
  Receipt Date: 20220105
  Transmission Date: 20220424
  Serious: Yes (Congenital Anomaly, Other)
  Sender: FDA-Public Use
  Company Number: GB-ABBVIE-22K-167-4220239-00

PATIENT
  Age: 22 Year
  Sex: Female

DRUGS (3)
  1. EPILIM [Suspect]
     Active Substance: VALPROATE SODIUM
     Indication: Maternal exposure during pregnancy
     Route: 064
  2. MONTELUKAST [Concomitant]
     Active Substance: MONTELUKAST SODIUM
     Indication: Product used for unknown indication
  3. VITALIUM [Concomitant]
     Indication: Product used for unknown indication

REACTIONS (5)
  - Congenital jaw malformation [Unknown]
  - Scoliosis [Unknown]
  - Attention deficit hyperactivity disorder [Unknown]
  - Educational problem [Unknown]
  - Foetal exposure during pregnancy [Unknown]
